FAERS Safety Report 6498101-X (Version None)
Quarter: 2009Q4

REPORT INFORMATION
  Report Type: 
  Country: None (occurrence: None)
  Receive Date: 20091215
  Receipt Date: 20091211
  Transmission Date: 20100525
  Serious: Yes (Death, Hospitalization)
  Sender: FDA-Public Use
  Company Number: HQWYE848109JAN07

PATIENT
  Sex: Male
  Weight: 81 kg

DRUGS (2)
  1. GEMTUZUMAB OZOGAMICIN [Suspect]
     Indication: ACUTE MYELOID LEUKAEMIA
     Route: 065
     Dates: start: 20061110, end: 20061110
  2. GEMTUZUMAB OZOGAMICIN [Suspect]
     Route: 065
     Dates: start: 20061125, end: 20061125

REACTIONS (5)
  - ASPERGILLOSIS [None]
  - BLOOD PH INCREASED [None]
  - BRONCHOPNEUMONIA [None]
  - PNEUMONIA FUNGAL [None]
  - RESPIRATORY FAILURE [None]
